FAERS Safety Report 25210911 (Version 1)
Quarter: 2025Q2

REPORT INFORMATION
  Report Type: Other
  Country: DK (occurrence: DK)
  Receive Date: 20250417
  Receipt Date: 20250417
  Transmission Date: 20250717
  Serious: Yes (Other)
  Sender: INCYTE
  Company Number: None

PATIENT
  Age: 56 Year
  Weight: 67 kg

DRUGS (2)
  1. PEMAZYRE [Suspect]
     Active Substance: PEMIGATINIB
     Indication: Hepatic cancer
  2. NYSTATIN [Concomitant]
     Active Substance: NYSTATIN
     Indication: Oral fungal infection
     Route: 065

REACTIONS (4)
  - Serous retinopathy [Unknown]
  - Serous retinal detachment [Unknown]
  - Eye irritation [Unknown]
  - Foreign body sensation in eyes [Unknown]
